FAERS Safety Report 8616674-5 (Version None)
Quarter: 2012Q3

REPORT INFORMATION
  Report Type: 
  Country: None (occurrence: None)
  Receive Date: 20120823
  Receipt Date: 20120817
  Transmission Date: 20120928
  Serious: Yes (Hospitalization)
  Sender: FDA-Public Use
  Company Number: DE-009507513-1208DEU008406

PATIENT

DRUGS (16)
  1. PIOGLITAZONE HYDROCHLORIDE [Suspect]
     Indication: TYPE 2 DIABETES MELLITUS
     Dosage: UNK
     Route: 048
     Dates: start: 20110214
  2. BLINDED SITAGLIPTIN PHOSPHATE [Suspect]
     Indication: TYPE 2 DIABETES MELLITUS
     Dosage: UNK
     Route: 048
     Dates: start: 20110214
  3. BLINDED INSULIN [Suspect]
     Indication: TYPE 2 DIABETES MELLITUS
     Dosage: UNK
     Route: 048
     Dates: start: 20110214
  4. CYNT (SIMVASTATIN) [Concomitant]
     Indication: BLOOD CALCIUM
     Dosage: 10.3
  5. TORSEMIDE [Concomitant]
     Dosage: 1 10
  6. LERCANIDIPINE [Concomitant]
     Indication: BLOOD CALCIUM
     Dosage: 110
  7. PLACEBO [Suspect]
     Indication: TYPE 2 DIABETES MELLITUS
     Dosage: UNK
     Route: 048
     Dates: start: 20110214
  8. METOPROLOL TARTRATE [Concomitant]
     Dosage: 95 1
  9. METFORMIN HYDROCHLORIDE [Suspect]
     Indication: TYPE 2 DIABETES MELLITUS
     Dosage: UNK
     Route: 048
     Dates: start: 20110214
  10. SIMVASTATIN [Suspect]
     Indication: TYPE 2 DIABETES MELLITUS
     Dosage: UNK
     Route: 048
     Dates: start: 20110214
  11. ALLOPURINOL [Concomitant]
     Indication: BLOOD URIC ACID
     Dosage: 10.5
  12. EZETIMIBE [Concomitant]
     Dosage: 1 10/20
  13. PROVAS MAXX [Concomitant]
     Indication: HYPERTENSION
     Dosage: 1 160/25
  14. VALSARTAN [Concomitant]
     Indication: HYPERTENSION
     Dosage: 1 160
  15. SIMVASTATIN [Suspect]
     Indication: TYPE 2 DIABETES MELLITUS
     Dosage: UNK
     Route: 048
     Dates: start: 20110214
  16. ASPIRIN [Concomitant]
     Indication: PLATELET AGGREGATION INHIBITION
     Dosage: 1 100

REACTIONS (1)
  - SCIATICA [None]
